FAERS Safety Report 19481437 (Version 2)
Quarter: 2022Q1

REPORT INFORMATION
  Report Type: Spontaneous
  Country: US (occurrence: US)
  Receive Date: 20210701
  Receipt Date: 20220221
  Transmission Date: 20220423
  Serious: Yes (Other)
  Sender: FDA-Public Use
  Company Number: US-BRISTOL-MYERS SQUIBB COMPANY-BMS-2021-061105

PATIENT
  Age: 73 Year
  Sex: Male

DRUGS (1)
  1. SPRYCEL [Suspect]
     Active Substance: DASATINIB
     Indication: Myeloid leukaemia
     Dosage: 100 MILLIGRAM, QD
     Route: 048
     Dates: start: 201601

REACTIONS (7)
  - Prostate cancer [Unknown]
  - Drug ineffective [Unknown]
  - Dermatitis acneiform [Unknown]
  - Rash [Unknown]
  - Urticaria [Unknown]
  - Acne [Not Recovered/Not Resolved]
  - Product dose omission issue [Unknown]
